FAERS Safety Report 16989218 (Version 1)
Quarter: 2019Q4

REPORT INFORMATION
  Report Type: Report from Study
  Country: FR (occurrence: FR)
  Receive Date: 20191104
  Receipt Date: 20191104
  Transmission Date: 20200122
  Serious: Yes (Hospitalization, Other)
  Sender: FDA-Public Use
  Company Number: FR-PFIZER INC-2019471861

PATIENT
  Age: 62 Year
  Sex: Female

DRUGS (18)
  1. AMLOR [Concomitant]
     Active Substance: AMLODIPINE BESYLATE
     Indication: HYPERTENSION
     Dosage: 5 MG, 1X/DAY
     Route: 048
     Dates: start: 20120531
  2. NOXAFIL [Concomitant]
     Active Substance: POSACONAZOLE
     Indication: LUNG DISORDER
     Dosage: 160 MG, 4X/DAY
     Route: 048
     Dates: start: 20120522
  3. SEROPLEX [Concomitant]
     Active Substance: ESCITALOPRAM OXALATE
     Indication: DEPRESSION
     Dosage: 20 MG, 1X/DAY
     Route: 048
     Dates: start: 20111118
  4. ENOXAPARIN [Suspect]
     Active Substance: ENOXAPARIN
     Indication: MYASTHENIC SYNDROME
     Dosage: 1000 IU, 4X/DAY
     Dates: start: 20111118
  5. FIRDAPSE [Suspect]
     Active Substance: AMIFAMPRIDINE
     Indication: MYASTHENIC SYNDROME
     Dosage: 70 MG, 1X/DAY
     Route: 048
     Dates: start: 20101118, end: 20140328
  6. SOLUPRED [PREDNISOLONE] [Suspect]
     Active Substance: PREDNISOLONE
     Dosage: 10 MG, 1X/DAY
     Route: 048
     Dates: start: 20110614, end: 20110804
  7. EUPANTOL [Concomitant]
     Active Substance: PANTOPRAZOLE SODIUM
     Indication: LUNG DISORDER
     Dosage: 40 MG, 1X/DAY
     Route: 048
     Dates: start: 20111222
  8. SOLUPRED [PREDNISOLONE] [Suspect]
     Active Substance: PREDNISOLONE
     Dosage: 20 MG, 1X/DAY
     Route: 048
     Dates: start: 20110805, end: 20120329
  9. SOLUPRED [PREDNISOLONE] [Suspect]
     Active Substance: PREDNISOLONE
     Dosage: 40 MG, 1X/DAY
     Route: 048
     Dates: start: 200901, end: 20110614
  10. CELLCEPT [Suspect]
     Active Substance: MYCOPHENOLATE MOFETIL\MYCOPHENOLATE MOFETIL HYDROCHLORIDE
     Indication: MYASTHENIC SYNDROME
     Dosage: 750 MG, 2X/DAY
     Dates: start: 20090116, end: 20120914
  11. MESTINON [Suspect]
     Active Substance: PYRIDOSTIGMINE BROMIDE
     Indication: MYASTHENIC SYNDROME
     Dosage: 420 MG, 1X/DAY
     Dates: start: 200712, end: 20140328
  12. VORICONAZOLE. [Concomitant]
     Active Substance: VORICONAZOLE
     Dosage: 200 MG, 1X/DAY
     Route: 048
     Dates: start: 20111118
  13. SOLUPRED [PREDNISOLONE] [Suspect]
     Active Substance: PREDNISOLONE
     Indication: BRONCHIAL DISORDER
     Dosage: 5 MG, 1X/DAY
     Route: 048
     Dates: start: 20120329, end: 201209
  14. FUROSEMIDE. [Concomitant]
     Active Substance: FUROSEMIDE
     Indication: HYPERTENSION
     Dosage: UNK UNK, 4X/DAY
     Route: 048
     Dates: start: 20120531
  15. HYDROCORTISONE. [Suspect]
     Active Substance: HYDROCORTISONE
     Dosage: UNK
  16. VORICONAZOLE. [Concomitant]
     Active Substance: VORICONAZOLE
     Indication: LUNG DISORDER
     Dosage: 400 MG, 2X/DAY
     Route: 048
     Dates: start: 20111118, end: 20120329
  17. MOTILIUM [Concomitant]
     Active Substance: DOMPERIDONE
     Indication: DIZZINESS
     Dosage: 30 MG, AS NEEDED
     Route: 048
     Dates: start: 2007
  18. ALPRAZOLAM. [Concomitant]
     Active Substance: ALPRAZOLAM
     Indication: DEPRESSION
     Dosage: 0.5 MG, 2X/DAY
     Route: 048
     Dates: start: 20111118

REACTIONS (2)
  - Pneumonia [Recovered/Resolved with Sequelae]
  - Scedosporium infection [Recovered/Resolved with Sequelae]

NARRATIVE: CASE EVENT DATE: 20120802
